FAERS Safety Report 23123255 (Version 1)
Quarter: 2023Q4

REPORT INFORMATION
  Report Type: Spontaneous
  Country: FR (occurrence: FR)
  Receive Date: 20231030
  Receipt Date: 20231030
  Transmission Date: 20240110
  Serious: Yes (Other)
  Sender: FDA-Public Use
  Company Number: None

PATIENT
  Age: 66 Year
  Sex: Female

DRUGS (2)
  1. ABEMACICLIB [Suspect]
     Active Substance: ABEMACICLIB
     Indication: Breast cancer metastatic
     Dosage: 150 MG, BID
     Route: 048
     Dates: start: 20230120, end: 20231019
  2. ANASTROZOLE [Suspect]
     Active Substance: ANASTROZOLE
     Indication: Breast cancer metastatic
     Dosage: 1 DOSAGE FORM, DAILY
     Route: 048
     Dates: start: 20230120

REACTIONS (2)
  - Myalgia [Not Recovered/Not Resolved]
  - Amyotrophy [Not Recovered/Not Resolved]

NARRATIVE: CASE EVENT DATE: 20230801
